FAERS Safety Report 8937616 (Version 1)
Quarter: 2012Q4

REPORT INFORMATION
  Report Type: Report from Study
  Country: FR (occurrence: FR)
  Receive Date: 20121130
  Receipt Date: 20121130
  Transmission Date: 20130627
  Serious: Yes (Hospitalization)
  Sender: FDA-Public Use
  Company Number: FR-ABBOTT-12P-056-1012961-00

PATIENT
  Age: 39 Year
  Sex: Female

DRUGS (1)
  1. KALETRA TABLETS 200/50 [Suspect]
     Indication: HIV INFECTION
     Route: 048
     Dates: start: 20090605, end: 20090821

REACTIONS (2)
  - Placenta praevia [Recovered/Resolved with Sequelae]
  - Metrorrhagia [Recovered/Resolved]
